FAERS Safety Report 8170249-3 (Version None)
Quarter: 2012Q1

REPORT INFORMATION
  Report Type: 
  Country: None (occurrence: None)
  Receive Date: 20120104
  Receipt Date: 20111024
  Transmission Date: 20120608
  Serious: No
  Sender: FDA-Public Use
  Company Number: 2011HGS-002674

PATIENT
  Age: 59 Year
  Sex: Female
  Weight: 71.6683 kg

DRUGS (11)
  1. CELEXA [Concomitant]
  2. DIGOXIN [Concomitant]
  3. PLAQUENIL (HYDROXYCHLOROQUINE SULFATE) (HYDROXYCHLOROQUINE SULFATE) [Concomitant]
  4. ATENOLOL [Concomitant]
  5. SYNVISC (HYALURONATE SODIUM) (HYALURONATE SODIUM) [Concomitant]
  6. SYNTHROID (LEVOTHYROXINE SODIUM) (LEVOTHYROXINE SODIUM) [Concomitant]
  7. BENLYSTA [Suspect]
     Indication: SYSTEMIC LUPUS ERYTHEMATOSUS
     Dosage: INTRAVENOUS DRIP
     Route: 041
     Dates: start: 20111012
  8. PREDNISONE [Concomitant]
  9. NSAID (NSAID'S) (NULL) [Concomitant]
  10. METHOTREXATE [Concomitant]
  11. HYDROCHLOROTHIAZIDE [Concomitant]

REACTIONS (5)
  - VERTIGO [None]
  - HEADACHE [None]
  - MOTION SICKNESS [None]
  - DIARRHOEA [None]
  - NAUSEA [None]
